FAERS Safety Report 21896317 (Version 2)
Quarter: 2025Q1

REPORT INFORMATION
  Report Type: Spontaneous
  Country: DE (occurrence: DE)
  Receive Date: 20230123
  Receipt Date: 20250214
  Transmission Date: 20250408
  Serious: No
  Sender: ALKEM
  Company Number: DE-ALKEM LABORATORIES LIMITED-DE-ALKEM-2022-12707

PATIENT
  Age: 42 Year
  Sex: Female
  Weight: 93 kg

DRUGS (11)
  1. FINGOLIMOD [Suspect]
     Active Substance: FINGOLIMOD
     Indication: Relapsing multiple sclerosis
     Dosage: 0.56 MILLIGRAM, QD (EVERY 1 DAY)
     Route: 048
     Dates: start: 20210204
  2. OCRELIZUMAB [Suspect]
     Active Substance: OCRELIZUMAB
     Indication: Relapsing multiple sclerosis
     Route: 042
     Dates: start: 20210819, end: 20210902
  3. OCRELIZUMAB [Suspect]
     Active Substance: OCRELIZUMAB
     Route: 042
     Dates: start: 20220303
  4. BACLOFEN [Concomitant]
     Active Substance: BACLOFEN
     Indication: Hypertonia
     Dosage: 25 MILLIGRAM, QD (EVERY 1 DAY)
     Route: 048
     Dates: start: 20201214
  5. Comirnaty [Concomitant]
     Indication: COVID-19 immunisation
     Dosage: UNK, QD (EVERY 1 DAY)
     Route: 030
     Dates: start: 20210512, end: 20210512
  6. Comirnaty [Concomitant]
     Dosage: UNK, QD (EVERY 1 DAY)
     Route: 030
     Dates: start: 20210625, end: 20210625
  7. Comirnaty [Concomitant]
     Dosage: UNK, QD
     Route: 065
     Dates: start: 20211221, end: 20211221
  8. FLUOXETINE HYDROCHLORIDE [Concomitant]
     Active Substance: FLUOXETINE HYDROCHLORIDE
     Indication: Depression
     Dosage: 20 MILLIGRAM, QD (EVERY 1 DAY)
     Route: 048
     Dates: start: 20210201
  9. IBUPROFEN [Concomitant]
     Active Substance: IBUPROFEN
     Indication: Prophylaxis
     Route: 065
  10. DESOGESTREL [Concomitant]
     Active Substance: DESOGESTREL
     Indication: Contraception
     Dosage: UNK, QD (EVERY 1 DAY)
     Route: 048
  11. OPIPRAMOL [Concomitant]
     Active Substance: OPIPRAMOL
     Indication: Depression
     Dosage: 50 MILLIGRAM, QID (EVERY 0.25 DAY)
     Route: 048
     Dates: start: 20210219

REACTIONS (2)
  - Coronavirus infection [Recovered/Resolved]
  - COVID-19 [Recovered/Resolved]

NARRATIVE: CASE EVENT DATE: 20211111
